FAERS Safety Report 19131166 (Version 1)
Quarter: 2021Q2

REPORT INFORMATION
  Report Type: Spontaneous
  Country: DE (occurrence: DE)
  Receive Date: 20210414
  Receipt Date: 20210414
  Transmission Date: 20210717
  Serious: Yes (Life-Threatening, Other)
  Sender: FDA-Public Use
  Company Number: DE-009507513-2104DEU001422

PATIENT
  Sex: Male

DRUGS (20)
  1. TEMOZOLOMIDE. [Suspect]
     Active Substance: TEMOZOLOMIDE
     Dosage: 2ND CYCLE (LONG?TIME INFUSION)
     Route: 065
     Dates: start: 20201013
  2. IRINOTECAN [Suspect]
     Active Substance: IRINOTECAN
     Indication: NEUROBLASTOMA
     Dosage: 5TH CYCLE, (LONG?TIME INFUSION)
     Route: 065
     Dates: start: 20210116
  3. IRINOTECAN [Suspect]
     Active Substance: IRINOTECAN
     Dosage: 3RD CYCLE, (LONG?TIME INFUSION)
     Route: 065
     Dates: start: 20201110
  4. TEMOZOLOMIDE. [Suspect]
     Active Substance: TEMOZOLOMIDE
     Indication: NEUROBLASTOMA
     Dosage: 1ST CYCLE (SHORT?TIME INFUSION)
     Route: 065
     Dates: start: 20200930, end: 20201002
  5. TEMOZOLOMIDE. [Suspect]
     Active Substance: TEMOZOLOMIDE
     Dosage: 4TH CYCLE, (LONG?TIME INFUSION)
     Route: 065
     Dates: start: 20201219
  6. NALBUPHINE HYDROCHLORIDE. [Concomitant]
     Active Substance: NALBUPHINE HYDROCHLORIDE
     Indication: PRODUCT USED FOR UNKNOWN INDICATION
     Route: 065
  7. DIPYRONE [Concomitant]
     Active Substance: DIPYRONE
     Indication: PRODUCT USED FOR UNKNOWN INDICATION
     Route: 065
  8. TEMOZOLOMIDE. [Suspect]
     Active Substance: TEMOZOLOMIDE
     Dosage: 3RD CYCLE (LONG?TIME INFUSION)
     Route: 065
     Dates: start: 20201110
  9. FLUCONAZOLE. [Concomitant]
     Active Substance: FLUCONAZOLE
     Indication: ANTIFUNGAL PROPHYLAXIS
     Route: 065
  10. DINUTUXIMAB [Suspect]
     Active Substance: DINUTUXIMAB
     Dosage: 4TH CYCLE, (LONG?TIME INFUSION)
     Route: 065
     Dates: start: 20201219
  11. DINUTUXIMAB [Suspect]
     Active Substance: DINUTUXIMAB
     Dosage: 3RD CYCLE, (LONG?TIME INFUSION)
     Route: 065
     Dates: start: 20201110
  12. SULFAMETHOXAZOLE (+) TRIMETHOPRIM [Concomitant]
     Active Substance: SULFAMETHOXAZOLE\TRIMETHOPRIM
     Indication: ANTIFUNGAL PROPHYLAXIS
     Route: 065
  13. LEVETIRACETAM. [Concomitant]
     Active Substance: LEVETIRACETAM
     Indication: SEIZURE
     Route: 065
  14. TEMOZOLOMIDE. [Suspect]
     Active Substance: TEMOZOLOMIDE
     Dosage: 5TH CYCLE, (LONG?TIME INFUSION)
     Route: 065
     Dates: start: 20210116
  15. DINUTUXIMAB [Suspect]
     Active Substance: DINUTUXIMAB
     Dosage: 5TH CYCLE, (LONG?TIME INFUSION)
     Route: 065
     Dates: start: 20210116
  16. DINUTUXIMAB [Suspect]
     Active Substance: DINUTUXIMAB
     Indication: NEUROBLASTOMA
     Dosage: 1ST CYCLE, (SHORT?TIME INFUSION)
     Route: 065
     Dates: start: 20200930, end: 20201002
  17. DINUTUXIMAB [Suspect]
     Active Substance: DINUTUXIMAB
     Dosage: 2ND CYCLE, (LONG?TIME INFUSION) (REDUCED TO 80%)
     Route: 065
     Dates: start: 20201013
  18. IRINOTECAN [Suspect]
     Active Substance: IRINOTECAN
     Dosage: 2ND CYCLE, (LONG?TIME INFUSION)
     Route: 065
     Dates: start: 20201013
  19. IRINOTECAN [Suspect]
     Active Substance: IRINOTECAN
     Dosage: 4TH CYCLE, (LONG?TIME INFUSION)
     Route: 065
     Dates: start: 20201219
  20. IRINOTECAN [Suspect]
     Active Substance: IRINOTECAN
     Dosage: 1ST CYCLE, (SHORT?TIME INFUSION)
     Route: 065
     Dates: start: 20200930, end: 20201002

REACTIONS (6)
  - Metastases to central nervous system [Unknown]
  - Metastases to liver [Unknown]
  - Cardiac arrest [Unknown]
  - Pyrexia [Unknown]
  - Immune effector cell-associated neurotoxicity syndrome [Unknown]
  - Therapy partial responder [Unknown]

NARRATIVE: CASE EVENT DATE: 2020
